FAERS Safety Report 8467516 (Version 3)
Quarter: 2012Q4

REPORT INFORMATION
  Report Type: 
  Country: AU (occurrence: AU)
  Receive Date: 20120320
  Receipt Date: 20121015
  Transmission Date: 20130627
  Serious: Yes (Other)
  Sender: FDA-Public Use
  Company Number: PHHY2012AU022881

PATIENT
  Sex: Female

DRUGS (3)
  1. GLIVEC [Suspect]
     Indication: GASTROINTESTINAL STROMAL TUMOUR
     Dosage: 600 mg, daily
     Route: 048
     Dates: start: 200707, end: 200806
  2. GLIVEC [Suspect]
     Dosage: 800 mg, daily
     Route: 048
     Dates: start: 200806
  3. GLIVEC [Suspect]
     Dosage: 1000 mg, daily
     Route: 048
     Dates: start: 20110803

REACTIONS (6)
  - Albinism [Not Recovered/Not Resolved]
  - Neoplasm progression [Unknown]
  - Malignant neoplasm progression [Unknown]
  - Generalised oedema [Recovered/Resolved]
  - Ascites [Recovered/Resolved]
  - Photosensitivity reaction [Unknown]
